FAERS Safety Report 17114600 (Version 2)
Quarter: 2019Q4

REPORT INFORMATION
  Report Type: Spontaneous
  Country: JP (occurrence: JP)
  Receive Date: 20191205
  Receipt Date: 20191209
  Transmission Date: 20200122
  Serious: Yes (Other)
  Sender: FDA-Public Use
  Company Number: JP-ROCHE-2489258

PATIENT
  Age: 60 Year
  Sex: Male

DRUGS (7)
  1. MEDICON [DEXTROMETHORPHAN HYDROBROMIDE] [Suspect]
     Active Substance: DEXTROMETHORPHAN HYDROBROMIDE
     Indication: INFLUENZA
     Route: 048
     Dates: start: 20190117
  2. TRANEXAMIC ACID. [Suspect]
     Active Substance: TRANEXAMIC ACID
     Indication: INFLUENZA
     Route: 048
     Dates: start: 20190117
  3. DEXTROMETHORPHAN HYDROBROMIDE. [Suspect]
     Active Substance: DEXTROMETHORPHAN HYDROBROMIDE
     Indication: PRODUCT USED FOR UNKNOWN INDICATION
     Route: 065
  4. L-CARBOCYSTEINE [Suspect]
     Active Substance: CARBOCYSTEINE
     Indication: PRODUCT USED FOR UNKNOWN INDICATION
     Route: 048
  5. CALONAL [Suspect]
     Active Substance: ACETAMINOPHEN
     Indication: INFLUENZA
     Dosage: 6 DOSAGE FORM
     Route: 048
     Dates: start: 20190117
  6. MUCODYNE [Suspect]
     Active Substance: CARBOCYSTEINE
     Indication: INFLUENZA
     Route: 048
     Dates: start: 20190117
  7. XOFLUZA [Suspect]
     Active Substance: BALOXAVIR MARBOXIL
     Indication: INFLUENZA
     Route: 048
     Dates: start: 20190117, end: 20190117

REACTIONS (2)
  - Dyspnoea [Unknown]
  - Swelling face [Unknown]

NARRATIVE: CASE EVENT DATE: 20190117
